FAERS Safety Report 11590829 (Version 1)
Quarter: 2015Q4

REPORT INFORMATION
  Report Type: Spontaneous
  Country: US (occurrence: US)
  Receive Date: 20151002
  Receipt Date: 20151002
  Transmission Date: 20160304
  Serious: Yes (Life-Threatening, Other)
  Sender: FDA-Public Use
  Company Number: US-PFIZER INC-2015316272

PATIENT
  Age: 42 Year
  Sex: Male

DRUGS (1)
  1. BENZOCAINE. [Suspect]
     Active Substance: BENZOCAINE
     Indication: LOCAL ANAESTHESIA
     Dosage: UNK

REACTIONS (1)
  - Methaemoglobinaemia [Recovered/Resolved]
